FAERS Safety Report 19494060 (Version 1)
Quarter: 2021Q3

REPORT INFORMATION
  Report Type: Spontaneous
  Country: CN (occurrence: CN)
  Receive Date: 20210705
  Receipt Date: 20210705
  Transmission Date: 20211014
  Serious: Yes (Life-Threatening, Hospitalization, Other)
  Sender: FDA-Public Use
  Company Number: CN-GLAXOSMITHKLINE-CNCH2021APC042548

PATIENT
  Age: 95 Year
  Sex: Male
  Weight: 50 kg

DRUGS (1)
  1. FENBID (IBUPROFEN) [Suspect]
     Active Substance: IBUPROFEN
     Indication: ARTHRALGIA
     Dosage: 0.4 G, BID
     Route: 048
     Dates: start: 20210309, end: 20210312

REACTIONS (6)
  - Haematemesis [Recovering/Resolving]
  - Asthenia [Recovering/Resolving]
  - Pallor [Recovering/Resolving]
  - Upper gastrointestinal haemorrhage [Recovering/Resolving]
  - Gastric haemorrhage [Recovering/Resolving]
  - Melaena [Recovering/Resolving]

NARRATIVE: CASE EVENT DATE: 20210312
